FAERS Safety Report 8436802-4 (Version None)
Quarter: 2012Q2

REPORT INFORMATION
  Report Type: 
  Country: None (occurrence: None)
  Receive Date: 20120614
  Receipt Date: 20120612
  Transmission Date: 20120825
  Serious: Yes (Death)
  Sender: FDA-Public Use
  Company Number: US-MYLANLABS-2012S1009844

PATIENT
  Age: 66 Year
  Sex: Male

DRUGS (1)
  1. AMNESTEEM [Suspect]
     Indication: SQUAMOUS CELL CARCINOMA

REACTIONS (3)
  - SQUAMOUS CELL CARCINOMA [None]
  - OFF LABEL USE [None]
  - ASPHYXIA [None]
